FAERS Safety Report 18050912 (Version 8)
Quarter: 2022Q1

REPORT INFORMATION
  Report Type: Other
  Country: DE (occurrence: None)
  Receive Date: 20200721
  Receipt Date: 20220222
  Transmission Date: 20220423
  Serious: Yes (Other)
  Sender: FDA-Public Use
  Company Number: DE-ROCHE-2646175

PATIENT
  Age: 54 Year
  Sex: Female

DRUGS (8)
  1. OCREVUS [Suspect]
     Active Substance: OCRELIZUMAB
     Indication: Secondary progressive multiple sclerosis
     Route: 042
     Dates: start: 20180813
  2. OCREVUS [Suspect]
     Active Substance: OCRELIZUMAB
     Route: 042
     Dates: start: 20200312
  3. OCREVUS [Suspect]
     Active Substance: OCRELIZUMAB
     Route: 042
     Dates: start: 20200914
  4. OCREVUS [Suspect]
     Active Substance: OCRELIZUMAB
     Route: 042
     Dates: start: 20210323
  5. PFIZER-BIONTECH COVID-19 VACCINE [Suspect]
     Active Substance: TOZINAMERAN
     Indication: COVID-19 prophylaxis
     Route: 065
     Dates: start: 20210608
  6. DALFAMPRIDINE [Concomitant]
     Active Substance: DALFAMPRIDINE
  7. FORMOTEROL FUMARATE [Concomitant]
     Active Substance: FORMOTEROL FUMARATE
  8. ALBUTEROL [Concomitant]
     Active Substance: ALBUTEROL

REACTIONS (12)
  - Syncope [Recovered/Resolved]
  - Human papilloma virus test positive [Not Recovered/Not Resolved]
  - Rhinorrhoea [Not Recovered/Not Resolved]
  - Off label use [Unknown]
  - Fatigue [Recovered/Resolved]
  - Dizziness [Recovered/Resolved]
  - Nausea [Recovered/Resolved]
  - Somnolence [Recovered/Resolved]
  - Blood immunoglobulin G decreased [Recovering/Resolving]
  - Fatigue [Recovered/Resolved]
  - Blood pressure increased [Unknown]
  - Ovarian cyst [Not Recovered/Not Resolved]

NARRATIVE: CASE EVENT DATE: 20180813
